FAERS Safety Report 6765664-6 (Version None)
Quarter: 2010Q2

REPORT INFORMATION
  Report Type: 
  Country: None (occurrence: None)
  Receive Date: 20100611
  Receipt Date: 20100601
  Transmission Date: 20101027
  Serious: Yes (Hospitalization)
  Sender: FDA-Public Use
  Company Number: CA-JNJFOC-20100601667

PATIENT
  Sex: Female
  Weight: 67 kg

DRUGS (4)
  1. REMICADE [Suspect]
     Indication: CROHN'S DISEASE
     Route: 042
  2. BENADRYL [Concomitant]
     Route: 048
  3. TYLENOL [Concomitant]
     Route: 048
  4. SOLU-CORTEF [Concomitant]
     Route: 042

REACTIONS (2)
  - IRITIS [None]
  - SALIVARY GLAND CALCULUS [None]
